FAERS Safety Report 7097871-X (Version None)
Quarter: 2010Q4

REPORT INFORMATION
  Report Type: 
  Country: None (occurrence: None)
  Receive Date: 20101112
  Receipt Date: 20100914
  Transmission Date: 20110411
  Serious: Yes (Hospitalization, Other)
  Sender: FDA-Public Use
  Company Number: US-BAYER-201035888NA

PATIENT
  Age: 25 Year
  Sex: Female
  Weight: 106 kg

DRUGS (1)
  1. OCELLA [Suspect]
     Indication: CONTRACEPTION
     Route: 048
     Dates: start: 20080901, end: 20090801

REACTIONS (6)
  - CHEST PAIN [None]
  - CHOLECYSTECTOMY [None]
  - DISCOMFORT [None]
  - PAIN [None]
  - POST GASTRIC SURGERY SYNDROME [None]
  - VOMITING [None]
